FAERS Safety Report 24332969 (Version 1)
Quarter: 2024Q3

REPORT INFORMATION
  Report Type: Spontaneous
  Country: US (occurrence: None)
  Receive Date: 20240917
  Receipt Date: 20240917
  Transmission Date: 20241016
  Serious: Yes (Death)
  Sender: Public
  Company Number: None

PATIENT
  Age: 62 Year
  Sex: Female
  Weight: 87 kg

DRUGS (1)
  1. METHOXY POLYETHYLENE GLYCOL-EPOETIN BETA [Suspect]
     Active Substance: METHOXY POLYETHYLENE GLYCOL-EPOETIN BETA
     Indication: Anaemia
     Dosage: OTHER FREQUENCY : ONCE;?
     Route: 040
     Dates: start: 20240914, end: 20240914

REACTIONS (4)
  - Blood pressure decreased [None]
  - Unresponsive to stimuli [None]
  - Respiratory arrest [None]
  - Pulse absent [None]

NARRATIVE: CASE EVENT DATE: 20240914
